FAERS Safety Report 7498528-3 (Version None)
Quarter: 2011Q2

REPORT INFORMATION
  Report Type: 
  Country: None (occurrence: None)
  Receive Date: 20110524
  Receipt Date: 20110509
  Transmission Date: 20111010
  Serious: Yes (Other)
  Sender: FDA-Public Use
  Company Number: US-BAYER-201023211NA

PATIENT
  Age: 35 Year
  Sex: Female

DRUGS (5)
  1. IBUPROFEN [Concomitant]
  2. MOTRIN [Concomitant]
     Dosage: UNK UNK, PRN
     Route: 048
  3. LORTAB [Concomitant]
     Dosage: UNK UNK, PRN
     Route: 048
  4. FLOMAX [Concomitant]
     Indication: PRODUCT USED FOR UNKNOWN INDICATION
     Dosage: UNK
     Dates: start: 20080610
  5. YAZ [Suspect]
     Indication: CONTRACEPTION
     Route: 048
     Dates: start: 20080401, end: 20091001

REACTIONS (6)
  - ABDOMINAL PAIN [None]
  - GALLBLADDER OPERATION [None]
  - NAUSEA [None]
  - CHOLECYSTITIS CHRONIC [None]
  - DIARRHOEA [None]
  - VOMITING [None]
